FAERS Safety Report 9773512 (Version 4)
Quarter: 2015Q2

REPORT INFORMATION
  Report Type: Spontaneous
  Country: US (occurrence: US)
  Receive Date: 20131219
  Receipt Date: 20150422
  Transmission Date: 20150821
  Serious: Yes (Hospitalization, Other)
  Sender: FDA-Public Use
  Company Number: US-009507513-1312USA006921

PATIENT
  Sex: Female

DRUGS (7)
  1. FOSAMAX [Suspect]
     Active Substance: ALENDRONATE SODIUM
     Indication: OSTEOPENIA
     Dosage: 70 MG, QW
     Route: 048
     Dates: start: 20000612, end: 20071012
  2. BONIVA [Concomitant]
     Active Substance: IBANDRONATE SODIUM
     Indication: OSTEOPOROSIS
     Dosage: 150 MG, QM
     Dates: start: 20071214, end: 20110526
  3. VITAMIN D [Concomitant]
     Active Substance: CHOLECALCIFEROL
     Indication: OSTEOPOROSIS
     Dosage: 600 IU, UNK
     Dates: start: 2000
  4. BIOTIN [Concomitant]
     Active Substance: BIOTIN
     Dosage: UNK, 1 X DAILY
     Dates: start: 2000
  5. ATACAND [Concomitant]
     Active Substance: CANDESARTAN CILEXETIL
     Indication: ESSENTIAL HYPERTENSION
     Dosage: UNK
     Dates: start: 1997
  6. FOSAMAX [Suspect]
     Active Substance: ALENDRONATE SODIUM
     Indication: OSTEOPOROSIS
  7. CALCIUM (UNSPECIFIED) [Concomitant]
     Active Substance: CALCIUM
     Indication: OSTEOPOROSIS
     Dosage: 600 MG, UNK
     Dates: start: 2000

REACTIONS (19)
  - Femur fracture [Recovering/Resolving]
  - Intervertebral disc degeneration [Recovered/Resolved]
  - Macular degeneration [Unknown]
  - Breast necrosis [Unknown]
  - Adverse event [Unknown]
  - Spinal compression fracture [Unknown]
  - Carpal tunnel syndrome [Recovering/Resolving]
  - Aortic valve incompetence [Unknown]
  - Breast calcifications [Unknown]
  - Back pain [Unknown]
  - Arteriosclerosis coronary artery [Unknown]
  - Intramedullary rod insertion [Unknown]
  - Stress fracture [Recovered/Resolved]
  - Pain in extremity [Recovering/Resolving]
  - Adverse event [Unknown]
  - Bundle branch block left [Unknown]
  - Low turnover osteopathy [Unknown]
  - Pain in extremity [Unknown]
  - Arthralgia [Recovering/Resolving]

NARRATIVE: CASE EVENT DATE: 2000
